FAERS Safety Report 6609197-6 (Version None)
Quarter: 2010Q1

REPORT INFORMATION
  Report Type: 
  Country: None (occurrence: None)
  Receive Date: 20100301
  Receipt Date: 20100219
  Transmission Date: 20100710
  Serious: Yes (Other)
  Sender: FDA-Public Use
  Company Number: FR-AMGEN-US377591

PATIENT
  Sex: Female

DRUGS (1)
  1. ENBREL [Suspect]
     Indication: PSORIATIC ARTHROPATHY
     Route: 058
     Dates: start: 20091020

REACTIONS (6)
  - ANXIETY [None]
  - CONDITION AGGRAVATED [None]
  - OROPHARYNGEAL BLISTERING [None]
  - PSORIATIC ARTHROPATHY [None]
  - RASH PAPULAR [None]
  - TACHYCARDIA [None]
